FAERS Safety Report 5565224-9 (Version None)
Quarter: 2007Q4

REPORT INFORMATION
  Report Type: 
  Country: None (occurrence: None)
  Receive Date: 20071218
  Receipt Date: 20071207
  Transmission Date: 20080405
  Serious: Yes (Hospitalization)
  Sender: FDA-Public Use
  Company Number: US-BAYER-US-2007-028702

PATIENT
  Age: 39 Year
  Sex: Male
  Weight: 83 kg

DRUGS (5)
  1. BETASERON [Suspect]
     Indication: RELAPSING-REMITTING MULTIPLE SCLEROSIS
     Route: 058
     Dates: start: 20020415, end: 20070711
  2. BETASERON [Suspect]
     Route: 058
     Dates: start: 20070101
  3. IBUPROFEN [Concomitant]
  4. MODAFINIL [Concomitant]
     Indication: FATIGUE
     Route: 048
  5. VARDENAFIL [Concomitant]
     Indication: ERECTILE DYSFUNCTION

REACTIONS (5)
  - PRURITUS [None]
  - PYREXIA [None]
  - RASH [None]
  - SKIN INFECTION [None]
  - URTICARIA [None]
